FAERS Safety Report 9229041 (Version 1)
Quarter: 2013Q2

REPORT INFORMATION
  Report Type: Spontaneous
  Country: US (occurrence: US)
  Receive Date: 20130412
  Receipt Date: 20130412
  Transmission Date: 20140414
  Serious: Yes (Hospitalization)
  Sender: FDA-Public Use
  Company Number: CHPA2013US006105

PATIENT
  Sex: Female

DRUGS (5)
  1. PRIVATE LABEL [Suspect]
     Indication: SMOKING CESSATION THERAPY
     Dosage: UNK, UNK
     Route: 062
     Dates: start: 201208, end: 201208
  2. PRIVATE LABEL [Suspect]
     Dosage: UNK, UNK
     Route: 062
     Dates: start: 201208, end: 201208
  3. ADVAIR [Concomitant]
     Dosage: UNK, UNK
  4. ALBUTEROL [Concomitant]
  5. ALPRAZOLAM [Concomitant]

REACTIONS (1)
  - Pneumonia [Recovered/Resolved]
